FAERS Safety Report 5762194-5 (Version None)
Quarter: 2008Q2

REPORT INFORMATION
  Report Type: 
  Country: None (occurrence: None)
  Receive Date: 20080609
  Receipt Date: 20080605
  Transmission Date: 20081010
  Serious: Yes (Death, Other)
  Sender: FDA-Public Use
  Company Number: US-BRISTOL-MYERS SQUIBB COMPANY-14212823

PATIENT
  Age: 20 Year
  Sex: Female

DRUGS (5)
  1. CYCLOPHOSPHAMIDE [Suspect]
  2. PREDNISONE [Suspect]
  3. SIROLIMUS [Suspect]
     Indication: PROPHYLAXIS
  4. TACROLIMUS [Suspect]
     Indication: PROPHYLAXIS
  5. RADIATION THERAPY [Suspect]

REACTIONS (6)
  - GRAFT VERSUS HOST DISEASE [None]
  - HEPATIC FAILURE [None]
  - HEPATITIS FULMINANT [None]
  - HERPES ZOSTER [None]
  - HYPONATRAEMIA [None]
  - INTESTINAL OBSTRUCTION [None]
